FAERS Safety Report 8843106 (Version 1)
Quarter: 2012Q4

REPORT INFORMATION
  Report Type: 
  Country: IT (occurrence: IT)
  Receive Date: 20121016
  Receipt Date: 20121016
  Transmission Date: 20130627
  Serious: Yes (Hospitalization)
  Sender: FDA-Public Use
  Company Number: PHHY2012IT091310

PATIENT
  Age: 51 Year
  Sex: Female

DRUGS (3)
  1. TEGRETOL [Suspect]
     Indication: EPILEPSY
     Dosage: 400 mg, daily
     Route: 048
     Dates: start: 20121001, end: 20121007
  2. EUTIROX [Concomitant]
     Dosage: 100 ug, UNK
     Route: 048
  3. DINTOINA [Concomitant]
     Dosage: 200 ug, UNK
     Route: 048
     Dates: start: 20120915

REACTIONS (3)
  - Erythrodermic psoriasis [Recovering/Resolving]
  - Hypertransaminasaemia [Recovering/Resolving]
  - Hyponatraemia [Recovering/Resolving]
